FAERS Safety Report 18296882 (Version 4)
Quarter: 2021Q3

REPORT INFORMATION
  Report Type: Spontaneous
  Country: FR (occurrence: FR)
  Receive Date: 20200922
  Receipt Date: 20210925
  Transmission Date: 20211014
  Serious: Yes (Other)
  Sender: FDA-Public Use
  Company Number: FR-JNJFOC-20200924785

PATIENT
  Age: 70 Year
  Sex: Male
  Weight: 74 kg

DRUGS (1)
  1. ERLEADA [Suspect]
     Active Substance: APALUTAMIDE
     Indication: PROSTATE CANCER
     Route: 048

REACTIONS (7)
  - Congestive cardiomyopathy [Recovered/Resolved]
  - Ventricular extrasystoles [Recovered/Resolved]
  - Cardiac disorder [Recovered/Resolved]
  - Ejection fraction decreased [Recovered/Resolved]
  - Metastases to liver [Unknown]
  - Bundle branch block left [Recovered/Resolved]
  - Thrombophlebitis [Unknown]

NARRATIVE: CASE EVENT DATE: 20200903
